FAERS Safety Report 24339512 (Version 2)
Quarter: 2024Q4

REPORT INFORMATION
  Report Type: Spontaneous
  Country: GB (occurrence: GB)
  Receive Date: 20240919
  Receipt Date: 20241011
  Transmission Date: 20250115
  Serious: Yes (Other)
  Sender: TEVA
  Company Number: GB-TEVA-VS-3243849

PATIENT
  Sex: Female

DRUGS (1)
  1. BECLOMETHASONE DIPROPIONATE [Suspect]
     Active Substance: BECLOMETHASONE DIPROPIONATE
     Indication: Product used for unknown indication
     Dosage: 2 PUFFS TWICE A DAY, MDI
     Route: 055

REACTIONS (2)
  - Chest discomfort [Unknown]
  - Nasopharyngitis [Unknown]
